FAERS Safety Report 13396780 (Version 3)
Quarter: 2017Q2

REPORT INFORMATION
  Report Type: Spontaneous
  Country: JP (occurrence: JP)
  Receive Date: 20170403
  Receipt Date: 20170526
  Transmission Date: 20170830
  Serious: Yes (Death, Life-Threatening)
  Sender: FDA-Public Use
  Company Number: JP-ELI_LILLY_AND_COMPANY-JP201703011441

PATIENT
  Age: 66 Year
  Sex: Male
  Weight: 53 kg

DRUGS (9)
  1. MAGMITT [Concomitant]
     Active Substance: MAGNESIUM OXIDE
  2. OXYCONTIN [Concomitant]
     Active Substance: OXYCODONE HYDROCHLORIDE
     Indication: PAIN
  3. PACLITAXEL. [Concomitant]
     Active Substance: PACLITAXEL
     Indication: GASTRIC CANCER STAGE IV
     Dosage: 120 MG, WEEKLY FOR THREE WEEKS FOLLOWED BY ONE WEEK REST
     Route: 042
     Dates: start: 20161014, end: 20161111
  4. CALONAL [Concomitant]
     Active Substance: ACETAMINOPHEN
  5. PARIET [Concomitant]
     Active Substance: RABEPRAZOLE SODIUM
  6. NAUZELIN [Concomitant]
     Active Substance: DOMPERIDONE
  7. BROTIZOLAM [Concomitant]
     Active Substance: BROTIZOLAM
  8. CYRAMZA [Suspect]
     Active Substance: RAMUCIRUMAB
     Indication: GASTRIC CANCER STAGE IV
     Dosage: 600 MG, DAY 1 AND 15
     Route: 042
     Dates: start: 20161014, end: 20161111
  9. LYRICA [Concomitant]
     Active Substance: PREGABALIN

REACTIONS (2)
  - Gastric perforation [Recovered/Resolved]
  - Malignant neoplasm progression [Fatal]

NARRATIVE: CASE EVENT DATE: 20161113
